FAERS Safety Report 7707826-7 (Version None)
Quarter: 2011Q3

REPORT INFORMATION
  Report Type: 
  Country: None (occurrence: None)
  Receive Date: 20110824
  Receipt Date: 20110810
  Transmission Date: 20111222
  Serious: Yes (Other)
  Sender: FDA-Public Use
  Company Number: US-BAYER-2011-072866

PATIENT
  Age: 17 Year
  Sex: Male
  Weight: 59 kg

DRUGS (1)
  1. LIDOCAINE HCL [Suspect]
     Indication: COSMETIC BODY PIERCING
     Dosage: UNK UNK, ONCE
     Route: 047

REACTIONS (6)
  - VISION BLURRED [None]
  - EYE SWELLING [None]
  - EYE PAIN [None]
  - EYE IRRITATION [None]
  - OCULAR HYPERAEMIA [None]
  - CORNEAL ABRASION [None]
